FAERS Safety Report 6525646-6 (Version None)
Quarter: 2010Q1

REPORT INFORMATION
  Report Type: 
  Country: None (occurrence: None)
  Receive Date: 20100104
  Receipt Date: 20091223
  Transmission Date: 20100710
  Serious: Yes (Other)
  Sender: FDA-Public Use
  Company Number: NL-ELI_LILLY_AND_COMPANY-NL200912005221

PATIENT
  Sex: Female

DRUGS (2)
  1. CYMBALTA [Suspect]
     Dosage: 120 MG, UNKNOWN
     Route: 065
     Dates: start: 20080101
  2. CARBAMAZEPINE [Concomitant]
     Dosage: 200 MG, 3/D
     Route: 065

REACTIONS (1)
  - ARRHYTHMIA [None]
